FAERS Safety Report 20420058 (Version 4)
Quarter: 2022Q3

REPORT INFORMATION
  Report Type: Report from Study
  Country: US (occurrence: US)
  Receive Date: 20220203
  Receipt Date: 20220829
  Transmission Date: 20221027
  Serious: Yes (Other)
  Sender: FDA-Public Use
  Company Number: US-TAKEDA-US201946101

PATIENT
  Age: 35 Year
  Sex: Male

DRUGS (46)
  1. TEDUGLUTIDE [Suspect]
     Active Substance: TEDUGLUTIDE
     Indication: Short-bowel syndrome
     Dosage: 3.4 MILLIGRAM, QD
     Route: 042
     Dates: start: 20190418, end: 20190828
  2. TEDUGLUTIDE [Suspect]
     Active Substance: TEDUGLUTIDE
     Indication: Short-bowel syndrome
     Dosage: 3.4 MILLIGRAM, QD
     Route: 042
     Dates: start: 20190418, end: 20190828
  3. TEDUGLUTIDE [Suspect]
     Active Substance: TEDUGLUTIDE
     Indication: Short-bowel syndrome
     Dosage: 3.4 MILLIGRAM, QD
     Route: 042
     Dates: start: 20190418, end: 20190828
  4. TEDUGLUTIDE [Suspect]
     Active Substance: TEDUGLUTIDE
     Indication: Short-bowel syndrome
     Dosage: 3.4 MILLIGRAM, QD
     Route: 042
     Dates: start: 20190418, end: 20190828
  5. VANCOMYCIN [Concomitant]
     Active Substance: VANCOMYCIN
     Indication: Sepsis
     Dosage: 750 MILLIGRAM, BID
     Route: 042
     Dates: start: 20210131, end: 20210203
  6. VANCOMYCIN [Concomitant]
     Active Substance: VANCOMYCIN
     Indication: Vascular device infection
     Dosage: 1250 MILLIGRAM
     Route: 042
     Dates: start: 20210130, end: 20210130
  7. VANCOMYCIN [Concomitant]
     Active Substance: VANCOMYCIN
     Dosage: 750 MILLIGRAM, BID
     Route: 042
     Dates: start: 20210321, end: 20210401
  8. MICAFUNGIN [Concomitant]
     Active Substance: MICAFUNGIN
     Indication: Sepsis
     Dosage: 100 MILLIGRAM, QD
     Route: 042
     Dates: start: 20201015
  9. MICAFUNGIN [Concomitant]
     Active Substance: MICAFUNGIN
     Indication: Vascular device infection
     Dosage: 100 MILLIGRAM, QD
     Route: 042
     Dates: start: 20210809, end: 20210823
  10. ENOXAPARIN [Concomitant]
     Active Substance: ENOXAPARIN
     Indication: Sepsis
     Dosage: 60 MILLIGRAM, BID
     Route: 058
     Dates: start: 20201015
  11. ENOXAPARIN [Concomitant]
     Active Substance: ENOXAPARIN
     Indication: Subclavian vein thrombosis
     Dosage: 60 MILLIGRAM
     Route: 058
     Dates: start: 20210421, end: 20210421
  12. ENOXAPARIN [Concomitant]
     Active Substance: ENOXAPARIN
     Indication: Vascular device infection
     Dosage: 40 MILLIGRAM, QD
     Route: 058
     Dates: start: 20200713, end: 20200714
  13. ENOXAPARIN [Concomitant]
     Active Substance: ENOXAPARIN
     Dosage: 60 MILLIGRAM
     Route: 058
     Dates: start: 20201015
  14. DAPTOMYCIN [Concomitant]
     Active Substance: DAPTOMYCIN
     Indication: Vascular device infection
     Dosage: 600 MILLIGRAM, QD
     Route: 042
     Dates: start: 20210922, end: 20211022
  15. DAPTOMYCIN [Concomitant]
     Active Substance: DAPTOMYCIN
     Indication: Staphylococcal bacteraemia
     Dosage: 350 MILLIGRAM, QD
     Route: 042
     Dates: start: 20200212, end: 20200315
  16. ATROPINE\DIPHENOXYLATE [Concomitant]
     Active Substance: ATROPINE\DIPHENOXYLATE
     Indication: Diarrhoea
     Dosage: 5 MILLIGRAM, QID
     Route: 048
     Dates: start: 20180131
  17. IMODIUM [Concomitant]
     Active Substance: LOPERAMIDE HYDROCHLORIDE
     Indication: Diarrhoea
     Dosage: 2 MILLIGRAM, QID
     Route: 048
  18. VITAMINS [Concomitant]
     Active Substance: VITAMINS
     Indication: Hypovitaminosis
     Dosage: 1 DOSAGE FORM, QD
     Route: 048
     Dates: end: 20190515
  19. OMEPRAZOLE [Concomitant]
     Active Substance: OMEPRAZOLE
     Dosage: 20 MILLIGRAM, BID
     Route: 048
  20. STELARA [Concomitant]
     Active Substance: USTEKINUMAB
     Indication: Crohn^s disease
     Dosage: 90 MILLIGRAM
     Route: 058
     Dates: start: 20180413
  21. OXYCODONE [Concomitant]
     Active Substance: OXYCODONE
     Indication: Abdominal pain
     Dosage: 15 MILLIGRAM
     Route: 048
  22. OXYCODONE [Concomitant]
     Active Substance: OXYCODONE
     Indication: Vomiting
     Dosage: 20 MILLIGRAM
     Route: 048
     Dates: start: 20200621, end: 20200623
  23. OXYCODONE [Concomitant]
     Active Substance: OXYCODONE
     Indication: Vascular device infection
     Dosage: 20 MILLIGRAM
     Route: 048
     Dates: start: 20200713, end: 20200715
  24. BUDESONIDE [Concomitant]
     Active Substance: BUDESONIDE
     Indication: Crohn^s disease
     Dosage: 2 MILLIGRAM, QD
     Route: 054
     Dates: start: 20190828
  25. HYDROCORTISONE [Concomitant]
     Active Substance: HYDROCORTISONE
     Indication: Crohn^s disease
     Dosage: 25 MILLIGRAM, QD
     Route: 054
     Dates: start: 20190828
  26. CIPROFLOXACIN [Concomitant]
     Active Substance: CIPROFLOXACIN
     Indication: Anal abscess
     Dosage: 500 MILLIGRAM, BID
     Route: 048
     Dates: start: 20190620
  27. METRONIDAZOLE [Concomitant]
     Active Substance: METRONIDAZOLE
     Indication: Anal abscess
     Dosage: 250 MILLIGRAM, TID
     Route: 048
     Dates: start: 20190620
  28. METRONIDAZOLE [Concomitant]
     Active Substance: METRONIDAZOLE
     Indication: Sepsis
     Dosage: 250 UNK
     Route: 048
     Dates: start: 20200808, end: 20200828
  29. VIBRAMYCIN [Concomitant]
     Active Substance: DOXYCYCLINE
     Indication: Staphylococcal bacteraemia
     Dosage: 100 MILLIGRAM, BID
     Route: 048
     Dates: start: 20191202, end: 20191202
  30. VIBRAMYCIN [Concomitant]
     Active Substance: DOXYCYCLINE
     Indication: Arthralgia
     Dosage: 100 MILLIGRAM, BID
     Route: 048
     Dates: start: 20200201, end: 20200211
  31. LINEZOLID [Concomitant]
     Active Substance: LINEZOLID
     Indication: Staphylococcal bacteraemia
     Dosage: 600 MILLIGRAM, BID
     Route: 047
     Dates: start: 20191202, end: 20191212
  32. FENTANYL [Concomitant]
     Active Substance: FENTANYL
     Indication: Arthralgia
     Dosage: 50 MICROGRAM
     Route: 030
     Dates: start: 20200126, end: 20200126
  33. NORCO [Concomitant]
     Active Substance: ACETAMINOPHEN\HYDROCODONE BITARTRATE
     Indication: Arthralgia
     Dosage: 325 MILLIGRAM
     Route: 048
     Dates: start: 20200126, end: 20200126
  34. OXYCODONE AND ACETAMINOPHEN [Concomitant]
     Active Substance: ACETAMINOPHEN\OXYCODONE HYDROCHLORIDE
     Indication: Arthralgia
     Dosage: 325 MILLIGRAM
     Route: 048
     Dates: start: 20200201, end: 20200206
  35. DIFLUCAN [Concomitant]
     Active Substance: FLUCONAZOLE
     Indication: Staphylococcal bacteraemia
     Dosage: 200 MILLIGRAM, QD
     Route: 042
     Dates: start: 20200212, end: 20200229
  36. DEXAMETHASONE [Concomitant]
     Active Substance: DEXAMETHASONE
     Indication: Flank pain
     Dosage: 10 MILLIGRAM
     Route: 042
     Dates: start: 20200414, end: 20200414
  37. HYDROMORPHONE [Concomitant]
     Active Substance: HYDROMORPHONE
     Indication: Flank pain
     Dosage: 0.5 MILLIGRAM
     Route: 042
     Dates: start: 20200414, end: 20200414
  38. HYDROMORPHONE [Concomitant]
     Active Substance: HYDROMORPHONE
     Dosage: 1 MILLIGRAM
     Route: 042
     Dates: start: 20200621, end: 20200621
  39. PENICILLIN G BENZATHINE [Concomitant]
     Active Substance: PENICILLIN G BENZATHINE
     Indication: Flank pain
     Dosage: 1.2 INTERNATIONAL UNIT
     Route: 030
     Dates: start: 20200414, end: 20200415
  40. DICYCLOMINE [Concomitant]
     Active Substance: DICYCLOMINE HYDROCHLORIDE
     Indication: Vomiting
     Dosage: 20 MILLIGRAM
     Route: 048
     Dates: start: 20200621, end: 20200621
  41. ONDANSETRON [Concomitant]
     Active Substance: ONDANSETRON
     Indication: Vomiting
     Dosage: 8 MILLIGRAM
     Route: 042
     Dates: start: 20200621, end: 20200621
  42. ANIDULAFUNGIN [Concomitant]
     Active Substance: ANIDULAFUNGIN
     Indication: Vascular device infection
     Dosage: 100 MILLIGRAM, QD
     Route: 042
     Dates: start: 20200715, end: 20200715
  43. MIRTAZAPINE [Concomitant]
     Active Substance: MIRTAZAPINE
     Indication: Vascular device infection
     Dosage: 15 MILLIGRAM, QD
     Route: 048
     Dates: start: 20200713, end: 20200714
  44. CEFTRIAXONE [Concomitant]
     Active Substance: CEFTRIAXONE
     Indication: Sepsis
     Dosage: 2 GRAM, QD
     Route: 042
     Dates: start: 20200809, end: 20200824
  45. CEFTAROLINE [Concomitant]
     Active Substance: CEFTAROLINE
     Indication: Staphylococcal bacteraemia
     Dosage: 300 MILLIGRAM, BID
     Route: 042
     Dates: start: 20200925, end: 20201014
  46. CEFTAROLINE [Concomitant]
     Active Substance: CEFTAROLINE
     Indication: Sepsis
     Dosage: 600 MILLIGRAM
     Route: 030
     Dates: start: 20201015

REACTIONS (2)
  - Anal abscess [Recovered/Resolved]
  - Anal fistula [Not Recovered/Not Resolved]

NARRATIVE: CASE EVENT DATE: 20190620
